FAERS Safety Report 7778994-6 (Version None)
Quarter: 2011Q3

REPORT INFORMATION
  Report Type: 
  Country: None (occurrence: None)
  Receive Date: 20110926
  Receipt Date: 20110921
  Transmission Date: 20111222
  Serious: Yes (Other)
  Sender: FDA-Public Use
  Company Number: FR-BRISTOL-MYERS SQUIBB COMPANY-16089716

PATIENT

DRUGS (1)
  1. HYDREA [Suspect]

REACTIONS (1)
  - PANCREATITIS [None]
